FAERS Safety Report 14254947 (Version 3)
Quarter: 2018Q4

REPORT INFORMATION
  Report Type: Report from Study
  Country: BR (occurrence: BR)
  Receive Date: 20171206
  Receipt Date: 20181030
  Transmission Date: 20190204
  Serious: Yes (Hospitalization, Other)
  Sender: FDA-Public Use
  Company Number: PHHY2017BR175014

PATIENT
  Age: 31 Year
  Sex: Female
  Weight: 55 kg

DRUGS (3)
  1. MORPHINE [Concomitant]
     Active Substance: MORPHINE
     Indication: PAIN
     Dosage: 6 DF, QD
     Route: 048
     Dates: start: 201711
  2. MORPHINE [Concomitant]
     Active Substance: MORPHINE
     Indication: RENAL CANCER
  3. VOTRIENT [Suspect]
     Active Substance: PAZOPANIB HYDROCHLORIDE
     Indication: METASTATIC RENAL CELL CARCINOMA
     Dosage: 2 DF (2 X 400 MG), QD
     Route: 048
     Dates: start: 20171007

REACTIONS (26)
  - Depressed mood [Unknown]
  - Drug ineffective [Unknown]
  - Dizziness [Not Recovered/Not Resolved]
  - Haemorrhage [Recovering/Resolving]
  - Hair growth abnormal [Not Recovered/Not Resolved]
  - Haematuria [Recovering/Resolving]
  - Pneumonia [Recovering/Resolving]
  - Dyspnoea [Recovering/Resolving]
  - Asthenia [Not Recovered/Not Resolved]
  - Musculoskeletal chest pain [Unknown]
  - Pain [Recovering/Resolving]
  - Anxiety [Unknown]
  - Mouth haemorrhage [Unknown]
  - Dysphonia [Unknown]
  - Metastasis [Unknown]
  - Pyrexia [Recovering/Resolving]
  - Eating disorder [Not Recovered/Not Resolved]
  - Hypersomnia [Not Recovered/Not Resolved]
  - Dyspepsia [Not Recovered/Not Resolved]
  - Alopecia [Not Recovered/Not Resolved]
  - Vomiting [Recovering/Resolving]
  - Hair colour changes [Not Recovered/Not Resolved]
  - Malaise [Unknown]
  - Malignant neoplasm progression [Unknown]
  - Weight decreased [Not Recovered/Not Resolved]
  - Epistaxis [Unknown]

NARRATIVE: CASE EVENT DATE: 20180227
